FAERS Safety Report 17185490 (Version 1)
Quarter: 2019Q4

REPORT INFORMATION
  Report Type: Spontaneous
  Country: US (occurrence: US)
  Receive Date: 20191220
  Receipt Date: 20191220
  Transmission Date: 20200122
  Serious: No
  Sender: FDA-Public Use
  Company Number: US-MALLINCKRODT-T201904330

PATIENT
  Age: 54 Year
  Sex: Female
  Weight: 63 kg

DRUGS (3)
  1. FENTANYL TRANSDERMAL SYSTEM [Suspect]
     Active Substance: FENTANYL
     Dosage: 12 MCG/HOUR, EVERY 3 DAYS
     Route: 062
     Dates: start: 2019
  2. OXYCODONE [Concomitant]
     Active Substance: OXYCODONE
     Indication: PAIN
     Dosage: 10 MG, UNK (AS NECESSARY)
     Route: 065
  3. FENTANYL TRANSDERMAL SYSTEM [Suspect]
     Active Substance: FENTANYL
     Indication: PAIN
     Dosage: 12MCG/HOUR, 1 PATCH EVERY 3 DAYS
     Route: 062
     Dates: start: 20190522, end: 2019

REACTIONS (6)
  - Application site pain [Unknown]
  - Application site erythema [Unknown]
  - Product quality issue [Unknown]
  - Application site pruritus [Unknown]
  - Drug ineffective [Unknown]
  - Product use complaint [Unknown]

NARRATIVE: CASE EVENT DATE: 201905
